FAERS Safety Report 18569259 (Version 1)
Quarter: 2020Q4

REPORT INFORMATION
  Report Type: Spontaneous
  Country: US (occurrence: US)
  Receive Date: 20201202
  Receipt Date: 20201202
  Transmission Date: 20210114
  Serious: Yes (Other)
  Sender: FDA-Public Use
  Company Number: None

PATIENT
  Age: 79 Year
  Sex: Male
  Weight: 73.35 kg

DRUGS (11)
  1. XARELTO [Concomitant]
     Active Substance: RIVAROXABAN
  2. CLONIDINE. [Concomitant]
     Active Substance: CLONIDINE
  3. XANAX [Concomitant]
     Active Substance: ALPRAZOLAM
  4. VENTOLIN [Concomitant]
     Active Substance: ALBUTEROL SULFATE
  5. COREG [Concomitant]
     Active Substance: CARVEDILOL
  6. POTASSIUM [Concomitant]
     Active Substance: POTASSIUM
  7. TYLENOL [Concomitant]
     Active Substance: ACETAMINOPHEN
  8. AMLODIPINE 10 MG [Suspect]
     Active Substance: AMLODIPINE BESYLATE
     Indication: CHEST PAIN
     Dosage: ?          QUANTITY:1 TABLET(S);?
     Route: 048
     Dates: start: 20200401, end: 20201125
  9. AMLODIPINE 10 MG [Suspect]
     Active Substance: AMLODIPINE BESYLATE
     Indication: BLOOD PRESSURE ABNORMAL
     Dosage: ?          QUANTITY:1 TABLET(S);?
     Route: 048
     Dates: start: 20200401, end: 20201125
  10. HYDRALAZINE [Concomitant]
     Active Substance: HYDRALAZINE HYDROCHLORIDE
  11. FUROSEMIDE. [Concomitant]
     Active Substance: FUROSEMIDE

REACTIONS (5)
  - Stomatitis [None]
  - Nasal discomfort [None]
  - Choking [None]
  - Product solubility abnormal [None]
  - Throat irritation [None]

NARRATIVE: CASE EVENT DATE: 20201125
